FAERS Safety Report 7051297-3 (Version None)
Quarter: 2010Q4

REPORT INFORMATION
  Report Type: 
  Country: None (occurrence: None)
  Receive Date: 20101018
  Receipt Date: 20101018
  Transmission Date: 20110411
  Serious: Yes (Other)
  Sender: FDA-Public Use
  Company Number: None

PATIENT
  Age: 86 Year
  Sex: Female
  Weight: 71.6683 kg

DRUGS (2)
  1. ATENOLOL [Suspect]
     Indication: HYPERTENSION
     Dosage: 25 MG QD PO
     Route: 048
     Dates: start: 20100401, end: 20100801
  2. LOTENSIN [Suspect]
     Indication: HYPERTENSION
     Dosage: 20/12.5 MG ONCE QD PO
     Route: 048
     Dates: start: 20100401, end: 20100801

REACTIONS (2)
  - OEDEMA PERIPHERAL [None]
  - RASH [None]
